FAERS Safety Report 9087941 (Version 1)
Quarter: 2013Q1

REPORT INFORMATION
  Report Type: Report from Study
  Country: US (occurrence: US)
  Receive Date: 20130131
  Receipt Date: 20130131
  Transmission Date: 20140127
  Serious: No
  Sender: FDA-Public Use
  Company Number: US-ABBOTT-12P-163-0964011-00

PATIENT
  Age: 45 None
  Sex: Male

DRUGS (3)
  1. HUMIRA [Suspect]
     Indication: PSORIASIS
     Dosage: DAY 1
     Route: 058
     Dates: start: 20120711, end: 20120711
  2. HUMIRA [Suspect]
     Dosage: DAY 5
     Route: 058
     Dates: start: 20120715, end: 20120715
  3. HUMIRA [Suspect]
     Route: 058

REACTIONS (6)
  - Anxiety [Recovered/Resolved]
  - Psoriasis [Unknown]
  - Insomnia [Unknown]
  - Blood pressure fluctuation [Unknown]
  - Injection site bruising [Unknown]
  - Injection site pain [Unknown]
